FAERS Safety Report 19513146 (Version 1)
Quarter: 2021Q3

REPORT INFORMATION
  Report Type: Spontaneous
  Country: IL (occurrence: IL)
  Receive Date: 20210709
  Receipt Date: 20210709
  Transmission Date: 20211014
  Serious: Yes (Life-Threatening, Hospitalization, Other)
  Sender: FDA-Public Use
  Company Number: IL-ASTRAZENECA-2021A607659

PATIENT
  Sex: Male

DRUGS (1)
  1. TAGRISSO [Suspect]
     Active Substance: OSIMERTINIB
     Route: 048
     Dates: start: 202101

REACTIONS (6)
  - Arterial occlusive disease [Unknown]
  - Disease progression [Unknown]
  - Gene mutation [Unknown]
  - Myocardial infarction [Unknown]
  - Hypotension [Unknown]
  - Haemoptysis [Unknown]
